FAERS Safety Report 17610557 (Version 1)
Quarter: 2020Q2

REPORT INFORMATION
  Report Type: Spontaneous
  Country: IT (occurrence: IT)
  Receive Date: 20200401
  Receipt Date: 20200401
  Transmission Date: 20200713
  Serious: Yes (Other)
  Sender: FDA-Public Use
  Company Number: IT-PFIZER INC-2020133226

PATIENT
  Age: 59 Year
  Sex: Female
  Weight: 65 kg

DRUGS (2)
  1. FARMORUBICINA [Suspect]
     Active Substance: EPIRUBICIN HYDROCHLORIDE
     Indication: BREAST CANCER
     Dosage: 157.5 MG, CYCLIC (200MG/100ML SOLUTION FOR INFUSION FOR INTRAVENOUS USE)
     Route: 042
     Dates: start: 20191014, end: 20191129
  2. ENDOXAN-BAXTER [Concomitant]
     Active Substance: CYCLOPHOSPHAMIDE
     Indication: BREAST CANCER
     Dosage: 1050 MG, UNK
     Route: 042
     Dates: start: 20191014

REACTIONS (11)
  - Mucosal inflammation [Recovering/Resolving]
  - Angular cheilitis [Recovering/Resolving]
  - Nausea [Recovering/Resolving]
  - Skin toxicity [Recovering/Resolving]
  - Aphthous ulcer [Recovering/Resolving]
  - Neurotoxicity [Recovering/Resolving]
  - Hypotension [Recovering/Resolving]
  - Glossitis [Recovering/Resolving]
  - Bradycardia [Recovering/Resolving]
  - Dysphagia [Recovering/Resolving]
  - Parosmia [Recovering/Resolving]

NARRATIVE: CASE EVENT DATE: 20191201
